FAERS Safety Report 8501987 (Version 2)
Quarter: 2013Q2

REPORT INFORMATION
  Report Type: Spontaneous
  Country: US (occurrence: None)
  Receive Date: 20120327
  Receipt Date: 20120709
  Transmission Date: 20140414
  Serious: Yes (Hospitalization)
  Sender: FDA-Public Use
  Company Number: PHHY2011US37514

PATIENT
  Age: 63 Year
  Sex: Male
  Weight: 74.8 kg

DRUGS (14)
  1. GLEEVEC [Suspect]
     Indication: CHRONIC MYELOID LEUKAEMIA (IN REMISSION)
     Dosage: 400 MG, DAILY, ORAL ; 400 MG, DAILY, ORAL
     Route: 048
     Dates: start: 20110201, end: 20110302
  2. ACYCLOVIR (ACICLOVIR) (ACICLOVIR) [Concomitant]
  3. ASPIRIN (ACETYLSALICYLIC ACID) [Concomitant]
  4. CELLCEPT (MYCOPHENOLATE MOFETIL) [Concomitant]
  5. COLNIDIN (BROMHEXINE, CHLORPHENAMINE, GLAFENINE, PARACETAMOL) [Concomitant]
  6. COREG (CARVEDILOL) [Concomitant]
  7. GEMFIBROZIL (GEMFIBROZIL) [Concomitant]
  8. LASIX (FUROSEMIDE) [Concomitant]
  9. LIPITOR (ATORVASTATIN CALCIUM) [Concomitant]
  10. LISINOPRIL (LISINOPRIL) [Concomitant]
  11. NEXIUM (ESOMEPRAZOLE MAGNESIUM) [Concomitant]
  12. POTASSIUM CHLORIDE (POTASSIUM CHLORIDE) [Concomitant]
  13. RAPAMUNE (SIROLIMUS) [Concomitant]
  14. CLONIDINE (CLONIDINE) [Concomitant]

REACTIONS (15)
  - CARDIAC FAILURE CONGESTIVE [None]
  - WEIGHT INCREASED [None]
  - SWELLING FACE [None]
  - JOINT SWELLING [None]
  - EYE SWELLING [None]
  - Glossodynia [None]
  - Platelet count decreased [None]
  - Nausea [None]
  - Diarrhoea [None]
  - Muscle spasms [None]
  - Haematuria [None]
  - Eyelid disorder [None]
  - Fluid retention [None]
  - Dyspnoea [None]
  - Fatigue [None]
